FAERS Safety Report 7689797-5 (Version None)
Quarter: 2011Q3

REPORT INFORMATION
  Report Type: 
  Country: None (occurrence: None)
  Receive Date: 20110818
  Receipt Date: 20110622
  Transmission Date: 20111222
  Serious: Yes (Other)
  Sender: FDA-Public Use
  Company Number: US-AMGEN-USASP2011031937

PATIENT
  Sex: Female

DRUGS (10)
  1. VITAMIN D [Concomitant]
     Dosage: UNK
  2. PROLIA [Suspect]
     Indication: OSTEOPOROSIS POSTMENOPAUSAL
     Dosage: 60 MG, Q6MO
     Dates: start: 20110501
  3. ATENOLOL [Concomitant]
  4. PATADAY [Concomitant]
     Dosage: UNK
     Route: 047
  5. NAPROXEN (ALEVE) [Concomitant]
  6. METAMUCIL                          /00029101/ [Concomitant]
  7. CALCIUM CARBONATE [Concomitant]
     Dosage: 2300 MG, UNK
  8. CRESTOR [Concomitant]
  9. TUMS                               /00108001/ [Concomitant]
     Dosage: UNK
  10. SKELAXIN [Concomitant]

REACTIONS (6)
  - DYSPHAGIA [None]
  - INFLUENZA [None]
  - PAIN IN EXTREMITY [None]
  - MUSCLE SPASMS [None]
  - LOCAL SWELLING [None]
  - PAIN [None]
